FAERS Safety Report 11329747 (Version 1)
Quarter: 2015Q3

REPORT INFORMATION
  Report Type: Spontaneous
  Country: IT (occurrence: IT)
  Receive Date: 20150803
  Receipt Date: 20150803
  Transmission Date: 20151125
  Serious: Yes (Hospitalization)
  Sender: FDA-Public Use
  Company Number: IT-BAYER-2015-388694

PATIENT
  Age: 89 Year
  Sex: Female

DRUGS (7)
  1. MEDROL [Concomitant]
     Active Substance: METHYLPREDNISOLONE
     Dosage: UNK
     Route: 048
  2. EUTIROX [Concomitant]
     Active Substance: LEVOTHYROXINE SODIUM
     Dosage: UNK
     Route: 048
  3. ZOLOFT [Concomitant]
     Active Substance: SERTRALINE HYDROCHLORIDE
     Dosage: UNK
     Route: 048
  4. GLICLAZIDE [Suspect]
     Active Substance: GLICLAZIDE
     Dosage: 3 DF, ONCE
     Route: 048
     Dates: start: 20150604, end: 20150604
  5. GLUCOBAY [Suspect]
     Active Substance: ACARBOSE
     Indication: DIABETES MELLITUS
     Dosage: 2 DF, ONCE
     Route: 048
     Dates: start: 20150604, end: 20150604
  6. COUMADIN [Concomitant]
     Active Substance: WARFARIN SODIUM
     Dosage: UNK
     Route: 048
  7. LANOXIN [Concomitant]
     Active Substance: DIGOXIN
     Dosage: UNK
     Route: 048

REACTIONS (2)
  - Loss of consciousness [Unknown]
  - Hypoglycaemic coma [Unknown]

NARRATIVE: CASE EVENT DATE: 20150604
